FAERS Safety Report 8549657-4 (Version None)
Quarter: 2012Q3

REPORT INFORMATION
  Report Type: 
  Country: None (occurrence: None)
  Receive Date: 20120717
  Receipt Date: 20120705
  Transmission Date: 20120928
  Serious: Yes (Other)
  Sender: FDA-Public Use
  Company Number: FK201201859

PATIENT
  Age: 57 Year
  Sex: Male

DRUGS (1)
  1. LEVOTHYROXINE SODIUM [Suspect]
     Indication: THYROID DISORDER
     Dosage: 50 UG, DAILY ; 75 UG, DAILY ; 100 UG, DAILY

REACTIONS (6)
  - MYALGIA [None]
  - HYPOAESTHESIA [None]
  - MUSCULAR WEAKNESS [None]
  - AGGRESSION [None]
  - CARPAL TUNNEL SYNDROME [None]
  - HOSTILITY [None]
